FAERS Safety Report 18628145 (Version 1)
Quarter: 2020Q4

REPORT INFORMATION
  Report Type: Spontaneous
  Country: US (occurrence: US)
  Receive Date: 20201216
  Receipt Date: 20201216
  Transmission Date: 20210114
  Serious: Yes (Death)
  Sender: FDA-Public Use
  Company Number: None

PATIENT
  Age: 76 Year
  Sex: Male
  Weight: 102 kg

DRUGS (1)
  1. HEPARIN (HEPARIN NA 1000UNT/ML INJ) [Suspect]
     Active Substance: HEPARIN SODIUM
     Indication: ACUTE MYOCARDIAL INFARCTION
     Dates: start: 20201106, end: 20201118

REACTIONS (7)
  - Upper gastrointestinal haemorrhage [None]
  - Retroperitoneal haemorrhage [None]
  - Cardiac failure [None]
  - Atrial thrombosis [None]
  - Gastric haemorrhage [None]
  - Therapy interrupted [None]
  - Haemoglobin decreased [None]

NARRATIVE: CASE EVENT DATE: 20201120
